FAERS Safety Report 17126912 (Version 1)
Quarter: 2019Q4

REPORT INFORMATION
  Report Type: Spontaneous
  Country: FR (occurrence: FR)
  Receive Date: 20191209
  Receipt Date: 20191209
  Transmission Date: 20200122
  Serious: Yes (Other)
  Sender: FDA-Public Use
  Company Number: FR-ALLERGAN-1949955US

PATIENT
  Sex: Female

DRUGS (11)
  1. ESTRADIOL UNK [Suspect]
     Active Substance: ESTRADIOL
     Indication: PRODUCT USED FOR UNKNOWN INDICATION
     Dosage: UNK
  2. ENALAPRIL [Concomitant]
     Active Substance: ENALAPRIL
  3. ELBASVIR/GRAZOPREVIR [Suspect]
     Active Substance: ELBASVIR\GRAZOPREVIR
     Indication: HEPATITIS C
  4. ALBUTEROL. [Concomitant]
     Active Substance: ALBUTEROL
  5. ATENOLOL. [Concomitant]
     Active Substance: ATENOLOL
  6. FLUTICASONE. [Concomitant]
     Active Substance: FLUTICASONE
  7. ETODOLAC. [Concomitant]
     Active Substance: ETODOLAC
  8. PENTOXIFYLLINE. [Concomitant]
     Active Substance: PENTOXIFYLLINE
  9. KETOROLAC [Concomitant]
     Active Substance: KETOROLAC TROMETHAMINE
  10. OMEPRAZOLE. [Concomitant]
     Active Substance: OMEPRAZOLE
  11. INSULIN [Concomitant]
     Active Substance: INSULIN NOS

REACTIONS (2)
  - Hepatitis C [Unknown]
  - Virologic failure [Unknown]
